FAERS Safety Report 4533941-5 (Version None)
Quarter: 2004Q4

REPORT INFORMATION
  Report Type: 
  Country: None (occurrence: None)
  Receive Date: 20041214
  Receipt Date: 20041027
  Transmission Date: 20050328
  Serious: Yes (Hospitalization)
  Sender: FDA-Public Use
  Company Number: S04-USA-07134-01

PATIENT
  Age: 87 Year
  Sex: Male

DRUGS (3)
  1. LEXAPRO [Suspect]
     Dosage: 10 MG QD PO
     Route: 048
     Dates: start: 20040101, end: 20040901
  2. LEXAPRO [Suspect]
     Dosage: 5 MG QD PO
     Route: 048
     Dates: start: 20040101, end: 20040101
  3. DETROL [Concomitant]

REACTIONS (4)
  - CELLULITIS [None]
  - FALL [None]
  - HYPONATRAEMIA [None]
  - SKIN LACERATION [None]
